FAERS Safety Report 15494470 (Version 3)
Quarter: 2018Q4

REPORT INFORMATION
  Report Type: Spontaneous
  Country: US (occurrence: US)
  Receive Date: 20181012
  Receipt Date: 20181113
  Transmission Date: 20190205
  Serious: Yes (Life-Threatening, Hospitalization, Other)
  Sender: FDA-Public Use
  Company Number: US-PFIZER INC-2018412492

PATIENT
  Age: 24 Year
  Sex: Female

DRUGS (12)
  1. VENLAFAXINE HCL [Suspect]
     Active Substance: VENLAFAXINE HYDROCHLORIDE
     Indication: SUICIDE ATTEMPT
     Dosage: UNK
     Route: 048
  2. PENICILLIN VK [Suspect]
     Active Substance: PENICILLIN V POTASSIUM
     Indication: SUICIDE ATTEMPT
     Dosage: UNK
     Route: 048
  3. CYCLOBENZAPRINE. [Suspect]
     Active Substance: CYCLOBENZAPRINE
     Indication: SUICIDE ATTEMPT
     Dosage: UNK
     Route: 048
  4. FLUOXETINE [Suspect]
     Active Substance: FLUOXETINE HYDROCHLORIDE
     Indication: SUICIDE ATTEMPT
     Dosage: UNK
     Route: 048
  5. ZOLPIDEM [Suspect]
     Active Substance: ZOLPIDEM\ZOLPIDEM TARTRATE
     Indication: SUICIDE ATTEMPT
     Dosage: UNK
     Route: 048
  6. SIMVASTATIN. [Suspect]
     Active Substance: SIMVASTATIN
     Indication: SUICIDE ATTEMPT
     Dosage: UNK
     Route: 048
  7. TRAMADOL. [Suspect]
     Active Substance: TRAMADOL
     Indication: SUICIDE ATTEMPT
     Dosage: UNK
     Route: 048
  8. LORAZEPAM. [Suspect]
     Active Substance: LORAZEPAM
     Indication: SUICIDE ATTEMPT
     Dosage: UNK
     Route: 048
  9. OXYCODONE AND ACETAMINOPHEN [Suspect]
     Active Substance: ACETAMINOPHEN\OXYCODONE HYDROCHLORIDE
     Indication: SUICIDE ATTEMPT
     Dosage: UNK
     Route: 048
  10. METOPROLOL SUCCINATE. [Suspect]
     Active Substance: METOPROLOL SUCCINATE
     Indication: SUICIDE ATTEMPT
     Dosage: UNK (EXTENDED RELEASE ORAL TABLET)
     Route: 048
  11. CLONAZEPAM. [Suspect]
     Active Substance: CLONAZEPAM
     Indication: SUICIDE ATTEMPT
     Dosage: UNK
     Route: 048
  12. TEMAZEPAM. [Suspect]
     Active Substance: TEMAZEPAM
     Indication: SUICIDE ATTEMPT
     Dosage: UNK
     Route: 048

REACTIONS (11)
  - Toxicity to various agents [Recovered/Resolved]
  - Encephalopathy [Recovered/Resolved]
  - Coma scale abnormal [Recovered/Resolved]
  - Respiratory depression [Recovered/Resolved]
  - Sinus bradycardia [Recovered/Resolved]
  - Unresponsive to stimuli [Recovered/Resolved]
  - Cardiac failure acute [Recovered/Resolved]
  - Decorticate posture [Recovered/Resolved]
  - Blood pressure decreased [Recovered/Resolved]
  - Myocardial depression [Recovered/Resolved]
  - Hypothermia [Recovered/Resolved]
